FAERS Safety Report 6849769-7 (Version None)
Quarter: 2010Q3

REPORT INFORMATION
  Report Type: 
  Country: None (occurrence: None)
  Receive Date: 20100716
  Receipt Date: 20071109
  Transmission Date: 20110219
  Serious: Yes (Other)
  Sender: FDA-Public Use
  Company Number: US-PFIZER INC-2007084255

PATIENT
  Sex: Female
  Weight: 64.5 kg

DRUGS (10)
  1. CHANTIX [Suspect]
     Indication: SMOKING CESSATION THERAPY
     Dates: start: 20070101
  2. LIPITOR [Concomitant]
  3. TRAZODONE HYDROCHLORIDE [Concomitant]
  4. ACETYLSALICYLIC ACID [Concomitant]
  5. ADVAIR DISKUS 100/50 [Concomitant]
  6. CALCIUM WITH VITAMIN D [Concomitant]
  7. FISH OIL [Concomitant]
  8. GLUCOSAMINE [Concomitant]
  9. IBANDRONATE SODIUM [Concomitant]
  10. VALIUM [Concomitant]

REACTIONS (3)
  - MYALGIA [None]
  - NIGHTMARE [None]
  - RESTLESS LEGS SYNDROME [None]
